FAERS Safety Report 20026023 (Version 1)
Quarter: 2021Q4

REPORT INFORMATION
  Report Type: Spontaneous
  Country: FR (occurrence: FR)
  Receive Date: 20211102
  Receipt Date: 20211102
  Transmission Date: 20220303
  Serious: Yes (Other)
  Sender: FDA-Public Use
  Company Number: FR-GRUNENTHAL-2021-269987

PATIENT
  Age: 50 Year
  Sex: Male

DRUGS (2)
  1. QUTENZA [Suspect]
     Active Substance: CAPSAICIN
     Indication: Neuralgia
     Dosage: UNK
     Route: 003
     Dates: start: 20210708, end: 20210708
  2. QUTENZA [Suspect]
     Active Substance: CAPSAICIN
     Indication: Hypoaesthesia
     Dosage: UNK
     Route: 003
     Dates: start: 20210930, end: 20210930

REACTIONS (7)
  - Pain [Recovered/Resolved]
  - Diarrhoea [Recovered/Resolved]
  - Gastrointestinal pain [Unknown]
  - Blister [Recovered/Resolved]
  - Burning sensation [Recovered/Resolved]
  - Anorectal discomfort [Recovered/Resolved]
  - Skin discolouration [Recovered/Resolved]

NARRATIVE: CASE EVENT DATE: 20210709
